FAERS Safety Report 6278639-0 (Version None)
Quarter: 2009Q3

REPORT INFORMATION
  Report Type: 
  Country: None (occurrence: None)
  Receive Date: 20090722
  Receipt Date: 20090424
  Transmission Date: 20100115
  Serious: No
  Sender: FDA-Public Use
  Company Number: US-BAUSCH-2009BL001912

PATIENT
  Age: 68 Year
  Sex: Male

DRUGS (1)
  1. OPCON-A [Suspect]
     Indication: ABNORMAL SENSATION IN EYE
     Route: 047
     Dates: start: 20090424, end: 20090424

REACTIONS (2)
  - EXPIRED DRUG ADMINISTERED [None]
  - EYE PAIN [None]
